FAERS Safety Report 17242251 (Version 5)
Quarter: 2020Q3

REPORT INFORMATION
  Report Type: Report from Study
  Country: CN (occurrence: CN)
  Receive Date: 20200107
  Receipt Date: 20200730
  Transmission Date: 20201102
  Serious: Yes (Hospitalization)
  Sender: FDA-Public Use
  Company Number: NVSC2019CN079518

PATIENT
  Age: 47 Year
  Sex: Female
  Weight: 65 kg

DRUGS (11)
  1. INCADRONATE DISODIUM [Concomitant]
     Active Substance: INCADRONATE DISODIUM
     Indication: RESORPTION BONE INCREASED
     Dosage: UNK
     Route: 065
     Dates: start: 20191218, end: 20191218
  2. COMPARATOR LETROZOLE [Suspect]
     Active Substance: LETROZOLE
     Indication: BREAST CANCER
     Dosage: 2.5 MG, QD
     Route: 048
     Dates: start: 20190703
  3. LYSINE ACETYLSALICYLATE [Concomitant]
     Active Substance: ASPIRIN DL-LYSINE
     Indication: COUGH
     Dosage: UNK
     Route: 065
     Dates: start: 20191209, end: 20191214
  4. GLUTATHIONE [Concomitant]
     Active Substance: GLUTATHIONE
     Indication: GAMMA-GLUTAMYLTRANSFERASE INCREASED
     Dosage: UNK
     Route: 065
     Dates: start: 20191220, end: 20191224
  5. FOSFOMYCIN SODIUM [Concomitant]
     Active Substance: FOSFOMYCIN SODIUM
     Indication: COUGH
     Dosage: UNK
     Route: 065
     Dates: start: 20191209, end: 20191214
  6. RIBOCICLIB. [Suspect]
     Active Substance: RIBOCICLIB
     Indication: BREAST CANCER
     Dosage: UNK
     Route: 048
     Dates: start: 20190703
  7. COMPARATOR GOSERELIN [Suspect]
     Active Substance: GOSERELIN
     Indication: BREAST CANCER
     Dosage: UNK
     Route: 058
     Dates: start: 20190703
  8. VIDARABINE [Concomitant]
     Active Substance: VIDARABINE
     Indication: COUGH
     Dosage: UNK
     Route: 065
     Dates: start: 20191209, end: 20191214
  9. GLUTATHIONE [Concomitant]
     Active Substance: GLUTATHIONE
     Indication: ALANINE AMINOTRANSFERASE INCREASED
     Dosage: UNK
     Route: 065
     Dates: start: 20191227, end: 20200210
  10. BICYCLOL [Concomitant]
     Active Substance: BICYCLOL
     Indication: ALANINE AMINOTRANSFERASE INCREASED
     Dosage: UNK
     Route: 065
     Dates: start: 20191220, end: 20191224
  11. BICYCLOL [Concomitant]
     Active Substance: BICYCLOL
     Dosage: UNK
     Route: 065
     Dates: start: 20191227, end: 20200210

REACTIONS (1)
  - Pneumonia [Not Recovered/Not Resolved]

NARRATIVE: CASE EVENT DATE: 20191224
